FAERS Safety Report 18523400 (Version 10)
Quarter: 2024Q4

REPORT INFORMATION
  Report Type: Spontaneous
  Country: US (occurrence: US)
  Receive Date: 20201119
  Receipt Date: 20241219
  Transmission Date: 20250115
  Serious: Yes (Other)
  Sender: PFIZER
  Company Number: US-PFIZER INC-2020453425

PATIENT
  Age: 63 Year
  Sex: Female

DRUGS (1)
  1. XELJANZ [Suspect]
     Active Substance: TOFACITINIB CITRATE
     Dosage: 5 MG

REACTIONS (6)
  - Knee operation [Unknown]
  - Loss of personal independence in daily activities [Unknown]
  - Therapeutic response unexpected [Unknown]
  - Arthritis [Unknown]
  - COVID-19 [Unknown]
  - Inflammation [Not Recovered/Not Resolved]
